FAERS Safety Report 15731003 (Version 1)
Quarter: 2018Q4

REPORT INFORMATION
  Report Type: Report from Study
  Country: US (occurrence: US)
  Receive Date: 20181217
  Receipt Date: 20181217
  Transmission Date: 20190205
  Serious: Yes (Death, Hospitalization)
  Sender: FDA-Public Use
  Company Number: US-ACTELION-A-US2017-160653

PATIENT
  Age: 81 Year
  Sex: Female
  Weight: 72.56 kg

DRUGS (1)
  1. OPSUMIT [Suspect]
     Active Substance: MACITENTAN
     Indication: PULMONARY HYPERTENSION
     Dosage: 10 MG, QD
     Route: 048

REACTIONS (6)
  - Gastrooesophageal reflux disease [Unknown]
  - Fluid overload [Unknown]
  - Pulmonary arterial hypertension [Fatal]
  - Dyspnoea [Unknown]
  - Pleural effusion [Unknown]
  - Ear pain [Unknown]
